FAERS Safety Report 8303623-2 (Version None)
Quarter: 2012Q2

REPORT INFORMATION
  Report Type: 
  Country: None (occurrence: None)
  Receive Date: 20120418
  Receipt Date: 20120411
  Transmission Date: 20120825
  Serious: Yes (Hospitalization)
  Sender: FDA-Public Use
  Company Number: 2012SP011766

PATIENT
  Age: 67 Year
  Sex: Female
  Weight: 70 kg

DRUGS (9)
  1. FOSFOMYCIN (FOSFOMYCIN) [Suspect]
     Indication: URINARY TRACT INFECTION
     Dosage: UNK;UNK
  2. PEG-INTRON [Suspect]
     Indication: HEPATITIS C
     Dosage: 100 MCG;UNK;SC
     Route: 058
  3. FUROSEMIDE [Concomitant]
  4. LACTITOL [Concomitant]
  5. OMEPRAZOLE [Concomitant]
  6. VICTRELIS [Suspect]
     Indication: HEPATITIS C
     Dosage: 800 MG;Q12H;PO
     Route: 048
     Dates: start: 20111013
  7. REBETOL [Suspect]
     Indication: HEPATITIS C
     Dosage: 400 MG;Q12H;PO
     Route: 048
  8. ALDACTON [Concomitant]
  9. FILGRASTIM [Concomitant]

REACTIONS (2)
  - HYPONATRAEMIA [None]
  - DRUG INTERACTION [None]
